FAERS Safety Report 10717677 (Version 1)
Quarter: 2015Q1

REPORT INFORMATION
  Report Type: Spontaneous
  Country: CA (occurrence: CA)
  Receive Date: 20150116
  Receipt Date: 20150116
  Transmission Date: 20150721
  Serious: Yes (Death, Hospitalization, Other)
  Sender: FDA-Public Use
  Company Number: CA-B.I. PHARMACEUTICALS,INC./RIDGEFIELD-2015-BI-01601GD

PATIENT
  Age: 73 Year
  Sex: Female

DRUGS (8)
  1. VITAMIN B AND C [Concomitant]
     Indication: SUPPLEMENTATION THERAPY
     Route: 065
  2. RANITIDINE [Suspect]
     Active Substance: RANITIDINE\RANITIDINE HYDROCHLORIDE
     Indication: PRODUCT USED FOR UNKNOWN INDICATION
     Dosage: 300 MG
     Route: 048
  3. OCUFEN [Suspect]
     Active Substance: FLURBIPROFEN SODIUM
     Indication: POST PROCEDURAL COMPLICATION
     Route: 065
  4. DIAMOX SEQUELS [Suspect]
     Active Substance: ACETAZOLAMIDE
     Indication: POST PROCEDURAL COMPLICATION
     Dosage: 500 MG
     Route: 048
  5. CHLORAMPHENICOL W/HYDROCORTISONE/POLYMYXIN B [Suspect]
     Active Substance: CHLORAMPHENICOL\HYDROCORTISONE ACETATE\POLYMYXIN B SULFATE
     Indication: POST PROCEDURAL COMPLICATION
     Route: 065
  6. PRED FORTE [Suspect]
     Active Substance: PREDNISOLONE ACETATE
     Indication: POST PROCEDURAL COMPLICATION
     Route: 065
  7. SULINDAC. [Suspect]
     Active Substance: SULINDAC
     Indication: PRODUCT USED FOR UNKNOWN INDICATION
     Dosage: 200 MG
     Route: 065
  8. OPHTHOCORT [Suspect]
     Active Substance: CHLORAMPHENICOL\HYDROCORTISONE ACETATE\POLYMYXIN B SULFATE
     Indication: POST PROCEDURAL COMPLICATION
     Route: 061

REACTIONS (10)
  - Diphtheria [Fatal]
  - Purpura [Unknown]
  - Staphylococcal infection [Fatal]
  - Aplastic anaemia [Fatal]
  - Sepsis [Fatal]
  - Fusobacterium infection [Fatal]
  - Upper respiratory fungal infection [Fatal]
  - Oedema peripheral [Unknown]
  - Renal failure [Fatal]
  - Escherichia infection [Fatal]
